FAERS Safety Report 9969614 (Version 3)
Quarter: 2014Q2

REPORT INFORMATION
  Report Type: Report from Study
  Country: CA (occurrence: CA)
  Receive Date: 20140306
  Receipt Date: 20140402
  Transmission Date: 20141212
  Serious: Yes (Other)
  Sender: FDA-Public Use
  Company Number: CA-ROCHE-1122291

PATIENT
  Age: 67 Year
  Sex: Female
  Weight: 66.2 kg

DRUGS (13)
  1. ACTEMRA [Suspect]
     Indication: RHEUMATOID ARTHRITIS
     Route: 042
     Dates: start: 20120607
  2. ACTEMRA [Suspect]
     Route: 042
     Dates: start: 20130221
  3. ACTEMRA [Suspect]
     Route: 042
     Dates: start: 20131107
  4. PLAQUENIL [Concomitant]
  5. NAPROXEN [Concomitant]
  6. PANTOLOC [Concomitant]
  7. RAMIPRIL [Concomitant]
  8. ELTROXIN [Concomitant]
  9. ACTONEL [Concomitant]
  10. SPIRIVA [Concomitant]
  11. LORAZEPAM [Concomitant]
  12. COD LIVER OIL [Concomitant]
  13. ATORVASTATIN CALCIUM [Concomitant]

REACTIONS (5)
  - Aortic aneurysm [Not Recovered/Not Resolved]
  - Abdominal discomfort [Not Recovered/Not Resolved]
  - Weight decreased [Not Recovered/Not Resolved]
  - Nasopharyngitis [Recovered/Resolved]
  - Bronchitis [Recovered/Resolved]
